FAERS Safety Report 21397015 (Version 1)
Quarter: 2022Q3

REPORT INFORMATION
  Report Type: Spontaneous
  Country: FR (occurrence: FR)
  Receive Date: 20220930
  Receipt Date: 20220930
  Transmission Date: 20221027
  Serious: Yes (Disabling)
  Sender: FDA-Public Use
  Company Number: None

PATIENT
  Age: 79 Year
  Sex: Male
  Weight: 60 kg

DRUGS (9)
  1. LINEZOLID [Suspect]
     Active Substance: LINEZOLID
     Indication: Device related infection
     Dosage: 600 MG, 2X/DAY, 1 TABLET MORNING AND EVENING
     Route: 048
     Dates: start: 20220812, end: 20220905
  2. LANSOPRAZOLE [Concomitant]
     Active Substance: LANSOPRAZOLE
     Dosage: 30 MG, 1X/DAY, 1 TABLET (30 MG) EVENING
  3. CEFEPIME [Concomitant]
     Active Substance: CEFEPIME HYDROCHLORIDE
     Indication: Device related infection
     Dosage: 2 G, 3X/DAY, 1 INJECTION MORNING, NOON AND EVENING
     Dates: start: 20220812
  4. KARDEGIC [Concomitant]
     Active Substance: ASPIRIN DL-LYSINE
     Dosage: 1X/DAY, 1 SACHET MORNING
  5. TAHOR [Concomitant]
     Active Substance: ATORVASTATIN CALCIUM
     Dosage: 1X/DAY, 1 TABLET MORNING
  6. AMLODIPINE [Concomitant]
     Active Substance: AMLODIPINE BESYLATE
     Dosage: 10 MG, 1X/DAY, 1 CAPSULE (10 MG) MORNING
  7. RILMENIDINE [Concomitant]
     Active Substance: RILMENIDINE
     Dosage: 1 MG, 1X/DAY, 1 TABLET 1 MG IN THE MORNING
  8. NICARDIPINE HYDROCHLORIDE [Concomitant]
     Active Substance: NICARDIPINE HYDROCHLORIDE
     Dosage: 1X/DAY, 1 TABLET MORNING
  9. LOVENOX [Concomitant]
     Active Substance: ENOXAPARIN SODIUM
     Dosage: 1X/DAY, 4,000 ANTI-XA IU/0.4 ML, EVENING

REACTIONS (1)
  - Deafness neurosensory [Not Recovered/Not Resolved]

NARRATIVE: CASE EVENT DATE: 20220905
